FAERS Safety Report 22255499 (Version 2)
Quarter: 2023Q2

REPORT INFORMATION
  Report Type: Spontaneous
  Country: GR (occurrence: GR)
  Receive Date: 20230426
  Receipt Date: 20230503
  Transmission Date: 20230722
  Serious: Yes (Death, Other)
  Sender: FDA-Public Use
  Company Number: GR-ALXN-A202305477

PATIENT
  Sex: Male
  Weight: 90 kg

DRUGS (18)
  1. SOLIRIS [Suspect]
     Active Substance: ECULIZUMAB
     Dosage: 1200 MG, Q2W
     Route: 042
     Dates: end: 20230101
  2. SOLIRIS [Suspect]
     Active Substance: ECULIZUMAB
     Indication: Antiphospholipid syndrome
     Dosage: 900 MG, QW
     Route: 042
     Dates: start: 20220901, end: 20220922
  3. SOLIRIS [Suspect]
     Active Substance: ECULIZUMAB
     Indication: Off label use
     Dosage: 900 MG, QW
     Route: 042
     Dates: start: 20221103
  4. SULFAMETHOXAZOLE\TRIMETHOPRIM [Concomitant]
     Active Substance: SULFAMETHOXAZOLE\TRIMETHOPRIM
     Indication: Pneumocystis jirovecii pneumonia
     Dosage: 800/160MG 1/2X1 EVERY MO-WE-FR, TIW
     Route: 065
     Dates: start: 20220822
  5. CALCIUM CARBONATE\CHOLECALCIFEROL [Concomitant]
     Active Substance: CALCIUM CARBONATE\CHOLECALCIFEROL
     Indication: Osteoporosis prophylaxis
     Dosage: UNK
     Route: 065
     Dates: start: 20220822
  6. ENOXAPARIN SODIUM [Concomitant]
     Active Substance: ENOXAPARIN SODIUM
     Indication: Antiphospholipid syndrome
     Dosage: 8000 UT, UNK
     Route: 058
     Dates: start: 20220822
  7. COLISTIN [Concomitant]
     Active Substance: COLISTIN
     Indication: Pneumonia
     Dosage: 5500000 UNK, UNK
     Route: 042
     Dates: start: 20221215
  8. CORTINEF [Concomitant]
     Indication: Adrenal insufficiency
     Dosage: 0.1 MG, UNK
     Route: 065
     Dates: start: 20220825
  9. EPREX [Concomitant]
     Active Substance: ERYTHROPOIETIN
     Indication: Anaemia of chronic disease
     Dosage: 10000 UT, EVERY MO-WE-FR,TIW
     Route: 065
     Dates: start: 20221114
  10. IMMUNE GLOBULIN NOS [Concomitant]
     Active Substance: IMMUNE GLOBULIN NOS
     Indication: Antiphospholipid syndrome
     Dosage: 30 G, QD
     Route: 065
     Dates: start: 20221221, end: 20221225
  11. IMMUNE GLOBULIN NOS [Concomitant]
     Active Substance: IMMUNE GLOBULIN NOS
     Indication: COVID-19
  12. KINERET [Concomitant]
     Active Substance: ANAKINRA
     Indication: Antiphospholipid syndrome
     Dosage: 100 MG, UNK
     Route: 042
     Dates: start: 20220822
  13. MEDROL [Concomitant]
     Active Substance: METHYLPREDNISOLONE
     Indication: Antiphospholipid syndrome
     Dosage: 16 MG, UNK
     Route: 065
     Dates: start: 20220822
  14. OMEPRAZOLE [Concomitant]
     Active Substance: OMEPRAZOLE
     Indication: Gastrointestinal haemorrhage
     Dosage: 30 MG, UNK
     Route: 042
     Dates: start: 20220822
  15. REMDESIVIR [Concomitant]
     Active Substance: REMDESIVIR
     Indication: COVID-19
     Dosage: 100 MG, UNK
     Route: 042
     Dates: start: 20221201, end: 20221201
  16. ASPIRIN [Concomitant]
     Active Substance: ASPIRIN
     Indication: Antiphospholipid syndrome
     Dosage: 100 MG, UNK
     Route: 065
     Dates: start: 20220822
  17. TYGACIL [Concomitant]
     Active Substance: TIGECYCLINE
     Indication: Pneumonia
     Dosage: 50 MG, UNK
     Route: 065
     Dates: start: 20221215
  18. AVIBACTAM SODIUM\CEFTAZIDIME [Concomitant]
     Active Substance: AVIBACTAM SODIUM\CEFTAZIDIME
     Indication: Pneumonia
     Dosage: 940 MG, UNK
     Route: 065
     Dates: start: 20221215

REACTIONS (4)
  - Antiphospholipid syndrome [Fatal]
  - Condition aggravated [Fatal]
  - Suspected COVID-19 [Unknown]
  - Adrenal disorder [Unknown]

NARRATIVE: CASE EVENT DATE: 20220828
